FAERS Safety Report 6766505-3 (Version None)
Quarter: 2010Q2

REPORT INFORMATION
  Report Type: 
  Country: None (occurrence: None)
  Receive Date: 20100611
  Receipt Date: 20100520
  Transmission Date: 20101027
  Serious: Yes (Other)
  Sender: FDA-Public Use
  Company Number: US-BAYER-201015507NA

PATIENT
  Age: 33 Year
  Sex: Female
  Weight: 34 kg

DRUGS (38)
  1. MAGNEVIST [Suspect]
     Indication: NUCLEAR MAGNETIC RESONANCE IMAGING
  2. OMNISCAN [Suspect]
     Indication: NUCLEAR MAGNETIC RESONANCE IMAGING
  3. OPTIMARK [Suspect]
     Indication: NUCLEAR MAGNETIC RESONANCE IMAGING
  4. MULTIHANCE [Suspect]
     Indication: NUCLEAR MAGNETIC RESONANCE IMAGING
  5. PROHANCE [Suspect]
     Indication: NUCLEAR MAGNETIC RESONANCE IMAGING
  6. UNKNOWN GBCA [Suspect]
     Indication: NUCLEAR MAGNETIC RESONANCE IMAGING
     Dosage: AS USED: 125 ML
     Route: 042
     Dates: start: 20000523, end: 20000523
  7. UNKNOWN GBCA [Suspect]
     Dates: start: 20030707, end: 20030707
  8. UNKNOWN GBCA [Suspect]
     Dates: start: 20000426, end: 20000426
  9. UNKNOWN GBCA [Suspect]
     Dosage: AS USED: 120 ML
     Dates: start: 20010301, end: 20010301
  10. UNKNOWN GBCA [Suspect]
     Dates: start: 20031113, end: 20031113
  11. UNKNOWN GBCA [Suspect]
     Dates: start: 20030411, end: 20030411
  12. UNKNOWN GBCA [Suspect]
     Dates: start: 20040504, end: 20040504
  13. UNKNOWN GBCA [Suspect]
     Dates: start: 20020719, end: 20020719
  14. UNKNOWN GBCA [Suspect]
     Dates: start: 20000410, end: 20000410
  15. UNKNOWN GBCA [Suspect]
     Dates: start: 20070817, end: 20070817
  16. NEPHROVITE [Concomitant]
  17. RENAGEL [Concomitant]
     Dosage: 800 MG, 6 TABLETS TID
     Route: 048
     Dates: start: 20020718
  18. CELLCEPT [Concomitant]
  19. ASPIRIN [Concomitant]
  20. AMITRIPTYLINE [Concomitant]
  21. ATENOLOL [Concomitant]
  22. LEXAPRO [Concomitant]
  23. TRAZODONE [Concomitant]
  24. ARANESP [Concomitant]
  25. FELODIPINE [Concomitant]
  26. PROCARDIA [Concomitant]
  27. PRINIVIL [Concomitant]
  28. NORVASC [Concomitant]
  29. INDOCIN [Concomitant]
  30. LISINOPRIL [Concomitant]
  31. NEURONTIN [Concomitant]
  32. OMEPRAZOLE [Concomitant]
  33. SENSIPAR [Concomitant]
  34. SYNTHROID [Concomitant]
  35. EPO [Concomitant]
     Route: 058
     Dates: start: 20020718
  36. FERRLECIT [Concomitant]
  37. REGLAN [Concomitant]
  38. HEPARIN [Concomitant]
     Route: 042
     Dates: start: 20020719

REACTIONS (18)
  - ARTHRALGIA [None]
  - ASTHENIA [None]
  - EXTREMITY CONTRACTURE [None]
  - GAIT DISTURBANCE [None]
  - JOINT RANGE OF MOTION DECREASED [None]
  - MOBILITY DECREASED [None]
  - MUSCULAR WEAKNESS [None]
  - NEPHROGENIC SYSTEMIC FIBROSIS [None]
  - OEDEMA PERIPHERAL [None]
  - PAIN [None]
  - PRURITUS [None]
  - SKIN BURNING SENSATION [None]
  - SKIN DISCOLOURATION [None]
  - SKIN DISORDER [None]
  - SKIN HYPERTROPHY [None]
  - SKIN INDURATION [None]
  - SKIN SWELLING [None]
  - SKIN TIGHTNESS [None]
